FAERS Safety Report 10331224 (Version 2)
Quarter: 2014Q3

REPORT INFORMATION
  Report Type: Spontaneous
  Country: US (occurrence: None)
  Receive Date: 20140718
  Receipt Date: 20140731
  Transmission Date: 20150326
  Serious: Yes (Hospitalization, Other)
  Sender: FDA-Public Use
  Company Number: US-H14001-14-00216

PATIENT
  Age: 67 Year
  Sex: Female

DRUGS (9)
  1. STEROIDS (CORTICOSTEROIDS) [Concomitant]
     Active Substance: UNSPECIFIED INGREDIENT
  2. PREDNISONE. [Concomitant]
     Active Substance: PREDNISONE
  3. (VANCOMYCIN) [Concomitant]
  4. AMLODIPINE [Concomitant]
     Active Substance: AMLODIPINE BESYLATE
  5. CEFTAZIDIME. [Concomitant]
     Active Substance: CEFTAZIDIME
  6. MOXIFLOXACIN (SOLUTION) [Concomitant]
  7. LEVOFLOXACIN [Suspect]
     Active Substance: LEVOFLOXACIN
     Indication: ENDOPHTHALMITIS
     Dosage: (NOT OTHERWISE SPECIFIED)
     Route: 042
  8. METOPROLOL [Concomitant]
     Active Substance: METOPROLOL
  9. LEVOTHYROXINE [Concomitant]
     Active Substance: LEVOTHYROXINE

REACTIONS (6)
  - Ocular icterus [None]
  - Drug-induced liver injury [None]
  - Cholestasis [None]
  - Jaundice [None]
  - Vanishing bile duct syndrome [None]
  - Portal fibrosis [None]
